FAERS Safety Report 10381212 (Version 1)
Quarter: 2014Q1

REPORT INFORMATION
  Report Type: Spontaneous
  Country: US (occurrence: None)
  Receive Date: 20140306
  Receipt Date: 20140306
  Transmission Date: 20141002
  Serious: Yes (Life-Threatening, Other)
  Sender: FDA-Public Use
  Company Number: 163-21880-13031024

PATIENT
  Age: 73 Year
  Sex: Female
  Weight: 87.09 kg

DRUGS (17)
  1. REVLIMID (LENALIDOMIDE) (25 MILLIGRAM, CAPSULES) [Suspect]
     Indication: PLASMA CELL MYELOMA
     Route: 048
     Dates: start: 20121101
  2. ACICLOVIR (ACICLOVIR) [Concomitant]
  3. ASTELIN (AZELASTINE HYDROCHLORIDE) [Concomitant]
  4. AVAPRO (IRBESARTAN) [Concomitant]
  5. CALCIUIM CITRATE WITH VITAMINS (CALCIUM CITRATE) [Concomitant]
  6. GABAPENTIN (GABAPENTIN) [Concomitant]
  7. LIPITOR (ATORVASTATIN) [Concomitant]
  8. METOPROLOL SUCCINATE (METOPOROLOL SUCCINATE) [Concomitant]
  9. MULTIVITAL PLATINUM (MULTIVITAMINS) [Concomitant]
  10. NORVASC (AMLODIPINE BESILATE) [Concomitant]
  11. COUMADIN (WARFARIN SODIUM) [Concomitant]
  12. TOPROL (METOPROLOL SUCCINATE) [Concomitant]
  13. ALBUTEROL (SALBUTAMOL) [Concomitant]
  14. NASONEX (MOMETASONE FUROATE) [Concomitant]
  15. ASTEPRO (AZELASTINE HYDROCHLORIDE) [Concomitant]
  16. DECADRON (DEXAMETHASONE) [Concomitant]
  17. VELCADE (BORTEZOMIB) [Concomitant]

REACTIONS (1)
  - Deep vein thrombosis [None]
